FAERS Safety Report 23416714 (Version 1)
Quarter: 2024Q1

REPORT INFORMATION
  Report Type: Spontaneous
  Country: US (occurrence: None)
  Receive Date: 20240117
  Receipt Date: 20240117
  Transmission Date: 20240410
  Serious: Yes (Disabling, Other)
  Sender: FDA-Public Use
  Company Number: None

PATIENT
  Age: 46 Year
  Sex: Female
  Weight: 76.5 kg

DRUGS (1)
  1. WEGOVY [Suspect]
     Active Substance: SEMAGLUTIDE
     Indication: Weight decreased
     Dates: start: 20231030, end: 20231120

REACTIONS (4)
  - Nausea [None]
  - Vomiting [None]
  - Impaired gastric emptying [None]
  - Product complaint [None]

NARRATIVE: CASE EVENT DATE: 20231220
